FAERS Safety Report 7794707-6 (Version None)
Quarter: 2011Q3

REPORT INFORMATION
  Report Type: 
  Country: None (occurrence: None)
  Receive Date: 20110929
  Receipt Date: 20110921
  Transmission Date: 20111222
  Serious: Yes (Hospitalization)
  Sender: FDA-Public Use
  Company Number: 2011SP041765

PATIENT
  Age: 37 Year
  Sex: Female
  Weight: 58 kg

DRUGS (4)
  1. DOXORUBICIN HCL [Concomitant]
  2. DOPAMINE HCL [Concomitant]
  3. CERAZETTE (DESOGESTREL /00754001/) [Suspect]
     Indication: CONTRACEPTION
     Dosage: ;QD;PO
     Route: 048
     Dates: start: 20110822, end: 20110829
  4. OMEPRAZOLE [Concomitant]

REACTIONS (3)
  - HEPATITIS [None]
  - ABDOMINAL DISCOMFORT [None]
  - BREAST FEEDING [None]
